FAERS Safety Report 25869389 (Version 3)
Quarter: 2025Q4

REPORT INFORMATION
  Report Type: Spontaneous
  Country: EU (occurrence: EU)
  Receive Date: 20251001
  Receipt Date: 20251029
  Transmission Date: 20260118
  Serious: Yes (Life-Threatening, Hospitalization, Other)
  Sender: PFIZER
  Company Number: EU-PFIZER INC-202500194367

PATIENT
  Age: 28 Year
  Sex: Female

DRUGS (6)
  1. METHOTREXATE SODIUM [Suspect]
     Active Substance: METHOTREXATE SODIUM
     Indication: Choriocarcinoma
     Dosage: UNK, CYCLIC, INTERVALS OF 14 DAYS (7 CYCLES)
  2. LEUCOVORIN CALCIUM [Suspect]
     Active Substance: LEUCOVORIN CALCIUM
     Indication: Choriocarcinoma
     Dosage: UNK, CYCLIC, INTERVALS OF 14 DAYS (7 CYCLES)
  3. ACTINOMYCIN D [Suspect]
     Active Substance: DACTINOMYCIN
     Indication: Choriocarcinoma
     Dosage: UNK, CYCLIC, INTERVALS OF 14 DAYS (7 CYCLES)
  4. ETOPOSIDE [Suspect]
     Active Substance: ETOPOSIDE
     Indication: Choriocarcinoma
     Dosage: UNK, CYCLIC, INTERVALS OF 14 DAYS (7 CYCLES)
  5. CYCLOPHOSPHAMIDE [Suspect]
     Active Substance: CYCLOPHOSPHAMIDE
     Indication: Choriocarcinoma
     Dosage: UNK, CYCLIC, INTERVALS OF 14 DAYS (7 CYCLES)
  6. VINCRISTINE [Suspect]
     Active Substance: VINCRISTINE
     Indication: Choriocarcinoma
     Dosage: UNK, CYCLIC, INTERVALS OF 14 DAYS (7 CYCLES)

REACTIONS (1)
  - Vaginal haemorrhage [Recovering/Resolving]
